FAERS Safety Report 19031754 (Version 1)
Quarter: 2021Q1

REPORT INFORMATION
  Report Type: Spontaneous
  Country: CN (occurrence: CN)
  Receive Date: 20210319
  Receipt Date: 20210319
  Transmission Date: 20210420
  Serious: Yes (Life-Threatening, Other)
  Sender: FDA-Public Use
  Company Number: CN-PFIZER INC-2021259528

PATIENT
  Age: 56 Year
  Sex: Female
  Weight: 53 kg

DRUGS (1)
  1. LINEZOLID. [Suspect]
     Active Substance: LINEZOLID
     Indication: BACK PAIN
     Dosage: 0.6 G, 1X/DAY
     Route: 041
     Dates: start: 20210217, end: 20210217

REACTIONS (4)
  - Palpitations [Unknown]
  - Off label use [Unknown]
  - Hypoglycaemia [Recovering/Resolving]
  - Cold sweat [Unknown]

NARRATIVE: CASE EVENT DATE: 20210217
